FAERS Safety Report 26210102 (Version 1)
Quarter: 2025Q4

REPORT INFORMATION
  Report Type: Spontaneous
  Country: US (occurrence: US)
  Receive Date: 20251229
  Receipt Date: 20251229
  Transmission Date: 20260117
  Serious: Yes (Hospitalization, Other)
  Sender: MYLAN
  Company Number: US-MYLANLABS-2025M1110670

PATIENT
  Age: 31 Year
  Sex: Female

DRUGS (4)
  1. FENTANYL [Suspect]
     Active Substance: FENTANYL
     Indication: Product used for unknown indication
     Dosage: 300 MCG/HR
  2. AMPHETAMINE [Suspect]
     Active Substance: AMPHETAMINE
     Indication: Product used for unknown indication
     Dosage: UNK
  3. COCAINE [Suspect]
     Active Substance: COCAINE
     Indication: Product used for unknown indication
     Dosage: UNK
  4. METHADONE [Suspect]
     Active Substance: METHADONE HYDROCHLORIDE
     Indication: Product used for unknown indication
     Dosage: UNK

REACTIONS (8)
  - Respiratory failure [Unknown]
  - Acute respiratory distress syndrome [Unknown]
  - Pneumonia [Unknown]
  - Leukocytosis [Unknown]
  - Increased bronchial secretion [Recovering/Resolving]
  - Asthenia [Unknown]
  - Dyspnoea [Unknown]
  - Pyrexia [Not Recovered/Not Resolved]
